FAERS Safety Report 19817405 (Version 3)
Quarter: 2021Q4

REPORT INFORMATION
  Report Type: Report from Study
  Country: US (occurrence: US)
  Receive Date: 20210910
  Receipt Date: 20211122
  Transmission Date: 20220303
  Serious: Yes (Death, Life-Threatening, Hospitalization, Disabling, Other)
  Sender: FDA-Public Use
  Company Number: US-GILEAD-2021-0534340

PATIENT
  Age: 68 Year
  Sex: Male

DRUGS (48)
  1. REMDESIVIR [Suspect]
     Active Substance: REMDESIVIR
     Indication: COVID-19
     Dosage: UNK, QD
     Route: 042
     Dates: start: 20210524
  2. ABATACEPT [Suspect]
     Active Substance: ABATACEPT
     Indication: COVID-19
     Dosage: UNK, ONCE
     Route: 042
     Dates: start: 20210523
  3. PLACEBO [Suspect]
     Active Substance: UNSPECIFIED INGREDIENT
     Indication: COVID-19
     Dosage: UNK, ONCE
     Route: 042
     Dates: start: 20210523
  4. ASPIRIN [Concomitant]
     Active Substance: ASPIRIN
  5. AZITHROMYCIN [Concomitant]
     Active Substance: AZITHROMYCIN
  6. BENZONATATE [Concomitant]
     Active Substance: BENZONATATE
  7. CEFTRIAXONE [Concomitant]
     Active Substance: CEFTRIAXONE
  8. DULAGLUTIDE [Concomitant]
     Active Substance: DULAGLUTIDE
  9. FENTANYL [Concomitant]
     Active Substance: FENTANYL
  10. GLUCAGON [Concomitant]
     Active Substance: GLUCAGON
  11. GUAIFENESIN [Concomitant]
     Active Substance: GUAIFENESIN
  12. HEPARIN SODIUM\SODIUM CHLORIDE [Concomitant]
     Active Substance: HEPARIN SODIUM\SODIUM CHLORIDE
  13. INSULIN NOS [Concomitant]
     Active Substance: INSULIN NOS
  14. IPRATROPIUM BROMIDE [Concomitant]
     Active Substance: IPRATROPIUM BROMIDE
  15. LOSARTAN [Concomitant]
     Active Substance: LOSARTAN
  16. MAGNESIUM SULFATE [Concomitant]
     Active Substance: MAGNESIUM SULFATE
  17. METFORMIN [Concomitant]
     Active Substance: METFORMIN HYDROCHLORIDE
  18. METOPROLOL TARTRATE [Concomitant]
     Active Substance: METOPROLOL TARTRATE
  19. NOREPINEPHRINE BITARTRATE [Concomitant]
     Active Substance: NOREPINEPHRINE BITARTRATE
  20. OMEPRAZOLE [Concomitant]
     Active Substance: OMEPRAZOLE
  21. ACETAMINOPHEN [Concomitant]
     Active Substance: ACETAMINOPHEN
  22. ALBUTEROL [Concomitant]
     Active Substance: ALBUTEROL
  23. SENNOSIDES A AND B [Concomitant]
     Active Substance: SENNOSIDES A AND B
  24. ALBUMIN HUMAN [Concomitant]
     Active Substance: ALBUMIN HUMAN
  25. AMIODARONE [Concomitant]
     Active Substance: AMIODARONE
  26. CEFEPIME HYDROCHLORIDE [Concomitant]
     Active Substance: CEFEPIME HYDROCHLORIDE
  27. CISATRACURIUM BESYLATE [Concomitant]
     Active Substance: CISATRACURIUM BESYLATE
  28. DEXAMETHASONE [Concomitant]
     Active Substance: DEXAMETHASONE
  29. DILTIAZEM [Concomitant]
     Active Substance: DILTIAZEM
  30. DIPHENHYDRAMINE HYDROCHLORIDE [Concomitant]
     Active Substance: DIPHENHYDRAMINE HYDROCHLORIDE
  31. ETOMIDATE [Concomitant]
     Active Substance: ETOMIDATE
  32. FAMOTIDINE [Concomitant]
     Active Substance: FAMOTIDINE
  33. FUROSEMIDE [Concomitant]
     Active Substance: FUROSEMIDE
  34. HYDRALAZINE [Concomitant]
     Active Substance: HYDRALAZINE HYDROCHLORIDE
  35. HYDROMORPHONE HYDROCHLORIDE [Concomitant]
     Active Substance: HYDROMORPHONE HYDROCHLORIDE
  36. KETAMINE [Concomitant]
     Active Substance: KETAMINE
  37. LORAZEPAM [Concomitant]
     Active Substance: LORAZEPAM
  38. POLYETHYLENE GLYCOL 3350 [Concomitant]
     Active Substance: POLYETHYLENE GLYCOL 3350
  39. MEROPENEM [Concomitant]
     Active Substance: MEROPENEM
  40. METHYLPREDNISOLONE [Concomitant]
     Active Substance: METHYLPREDNISOLONE
  41. MIDAZOLAM [Concomitant]
     Active Substance: MIDAZOLAM
  42. OXYCODONE [Concomitant]
     Active Substance: OXYCODONE
  43. PROPOFOL [Concomitant]
     Active Substance: PROPOFOL
  44. QUETIAPINE [Concomitant]
     Active Substance: QUETIAPINE
  45. RIVAROXABAN [Concomitant]
     Active Substance: RIVAROXABAN
  46. ROCURONIUM [Concomitant]
     Active Substance: ROCURONIUM BROMIDE
  47. VANCOMYCIN [Concomitant]
     Active Substance: VANCOMYCIN
  48. VASOPRESSIN [Concomitant]
     Active Substance: VASOPRESSIN

REACTIONS (5)
  - Anaphylactic reaction [Recovered/Resolved]
  - Pneumonia serratia [Recovered/Resolved]
  - Hypoxia [Fatal]
  - Acute kidney injury [Not Recovered/Not Resolved]
  - Acute respiratory failure [Fatal]

NARRATIVE: CASE EVENT DATE: 20210602
